FAERS Safety Report 10971734 (Version 2)
Quarter: 2015Q2

REPORT INFORMATION
  Report Type: Report from Study
  Country: US (occurrence: US)
  Receive Date: 20150331
  Receipt Date: 20150430
  Transmission Date: 20150821
  Serious: Yes (Death)
  Sender: FDA-Public Use
  Company Number: PHEH2014US013419

PATIENT
  Age: 72 Year
  Sex: Female

DRUGS (2)
  1. GLEEVEC [Suspect]
     Active Substance: IMATINIB MESYLATE
     Indication: CHRONIC MYELOID LEUKAEMIA
     Dosage: 800 MG, ONCE DAILY
     Route: 048
  2. GLEEVEC [Suspect]
     Active Substance: IMATINIB MESYLATE
     Indication: MASTOCYTOSIS
     Dosage: 400 MG, ONCE DAILY
     Route: 048

REACTIONS (5)
  - Nausea [Not Recovered/Not Resolved]
  - Bladder disorder [Unknown]
  - Death [Fatal]
  - Mastocytosis [Not Recovered/Not Resolved]
  - Abdominal pain upper [Not Recovered/Not Resolved]

NARRATIVE: CASE EVENT DATE: 201502
